APPROVED DRUG PRODUCT: GLATOPA
Active Ingredient: GLATIRAMER ACETATE
Strength: 40MG/ML
Dosage Form/Route: INJECTABLE;SUBCUTANEOUS
Application: A206921 | Product #001 | TE Code: AP
Applicant: SANDOZ INC
Approved: Feb 12, 2018 | RLD: No | RS: No | Type: RX